FAERS Safety Report 9565736 (Version 1)
Quarter: 2013Q3

REPORT INFORMATION
  Report Type: Spontaneous
  Country: US (occurrence: US)
  Receive Date: 20130930
  Receipt Date: 20130930
  Transmission Date: 20140515
  Serious: Yes (Other)
  Sender: FDA-Public Use
  Company Number: US-GLAXOSMITHKLINE-A1042461A

PATIENT
  Age: 68 Year
  Sex: Female

DRUGS (12)
  1. ADVAIR [Suspect]
     Indication: CHRONIC OBSTRUCTIVE PULMONARY DISEASE
     Route: 055
     Dates: start: 2012
  2. SPIRIVA [Suspect]
  3. DUONEB [Concomitant]
  4. PRO-AIR [Concomitant]
  5. PANTOPRAZOLE [Concomitant]
  6. NATEGLINIDE [Concomitant]
  7. WELLBUTRIN [Concomitant]
  8. FUROSEMIDE [Concomitant]
  9. SINGULAIR [Concomitant]
  10. SALINE SOLUTION [Concomitant]
  11. COMBIVENT [Concomitant]
  12. PREDNISONE [Concomitant]

REACTIONS (3)
  - Hospitalisation [Unknown]
  - Dyspnoea [Unknown]
  - Alopecia [Unknown]
